FAERS Safety Report 7251923-X (Version None)
Quarter: 2011Q1

REPORT INFORMATION
  Report Type: 
  Country: None (occurrence: None)
  Receive Date: 20110128
  Receipt Date: 20100106
  Transmission Date: 20110831
  Serious: No
  Sender: FDA-Public Use
  Company Number: US-ABBOTT-09P-163-0613166-00

PATIENT
  Sex: Male
  Weight: 68.1 kg

DRUGS (6)
  1. PROAIR HFA [Concomitant]
     Indication: HYPERSENSITIVITY
  2. HUMIRA [Suspect]
     Route: 058
     Dates: start: 20091207
  3. ANTIHISTAMINES [Concomitant]
     Indication: SEASONAL ALLERGY
  4. HYDROCODONE [Concomitant]
     Indication: PRODUCT USED FOR UNKNOWN INDICATION
  5. HUMIRA [Suspect]
     Indication: ANKYLOSING SPONDYLITIS
     Route: 058
     Dates: start: 20090301, end: 20091021
  6. LISINOPRIL [Concomitant]
     Indication: HYPERTENSION

REACTIONS (3)
  - VIRAL INFECTION [None]
  - PRODUCTIVE COUGH [None]
  - COUGH [None]
